FAERS Safety Report 16143437 (Version 1)
Quarter: 2019Q2

REPORT INFORMATION
  Report Type: Spontaneous
  Country: US (occurrence: US)
  Receive Date: 20190401
  Receipt Date: 20190401
  Transmission Date: 20190711
  Serious: No
  Sender: FDA-Public Use
  Company Number: US-TEVA-2019-US-1024591

PATIENT
  Age: 63 Year
  Sex: Female

DRUGS (1)
  1. OXYCODONE HYDROCHLORIDE TABLET [Suspect]
     Active Substance: OXYCODONE HYDROCHLORIDE
     Indication: PAIN
     Dosage: SHE HAS USED THE PRODUCT FOR THREE YEARS WITH NO ISSUES
     Route: 065
     Dates: start: 2015

REACTIONS (3)
  - Urticaria [Unknown]
  - Somnolence [Unknown]
  - Pruritus generalised [Recovered/Resolved]
